FAERS Safety Report 4734170-2 (Version None)
Quarter: 2005Q3

REPORT INFORMATION
  Report Type: 
  Country: None (occurrence: None)
  Receive Date: 20050803
  Receipt Date: 20050803
  Transmission Date: 20060218
  Serious: Yes (Other)
  Sender: FDA-Public Use
  Company Number: None

PATIENT
  Age: 30 Year
  Sex: Male
  Weight: 91 kg

DRUGS (2)
  1. CEFAZOLIN [Suspect]
     Indication: BURSITIS
     Dosage: 2GM IV PUSH Q 8 H
     Route: 042
     Dates: start: 20050722, end: 20050726
  2. CEFAZOLIN [Suspect]

REACTIONS (1)
  - NAUSEA [None]
